FAERS Safety Report 22060882 (Version 1)
Quarter: 2023Q1

REPORT INFORMATION
  Report Type: Spontaneous
  Country: US (occurrence: US)
  Receive Date: 20230303
  Receipt Date: 20230303
  Transmission Date: 20230417
  Serious: No
  Sender: FDA-Public Use
  Company Number: US-EPIHEALTH-2022-US-030012

PATIENT
  Age: 50 Year
  Sex: Female
  Weight: 45.81 kg

DRUGS (7)
  1. RHOFADE [Suspect]
     Active Substance: OXYMETAZOLINE HYDROCHLORIDE
     Indication: Product used for unknown indication
     Dosage: APPLIED TO CHEEKS AND NOSE, DAILY IN AM.
     Route: 061
     Dates: start: 20221218, end: 20221223
  2. VITAMINS [Concomitant]
     Active Substance: VITAMINS
  3. CALCIUM [Concomitant]
     Active Substance: CALCIUM
  4. VITAMIN D3 [Concomitant]
     Active Substance: CHOLECALCIFEROL
  5. LACTULOSE [Concomitant]
     Active Substance: LACTULOSE
  6. Zenva [Concomitant]
  7. Azelaic acid cream [Concomitant]
     Dosage: APPLIED IN EVENINGS

REACTIONS (3)
  - Application site erythema [Recovering/Resolving]
  - Application site swelling [Recovering/Resolving]
  - Application site hypoaesthesia [Recovering/Resolving]

NARRATIVE: CASE EVENT DATE: 20221219
